FAERS Safety Report 16966245 (Version 5)
Quarter: 2021Q2

REPORT INFORMATION
  Report Type: Spontaneous
  Country: US (occurrence: US)
  Receive Date: 20191028
  Receipt Date: 20210630
  Transmission Date: 20210716
  Serious: Yes (Other)
  Sender: FDA-Public Use
  Company Number: US-GILEAD-2019-0434722

PATIENT
  Age: 37 Year
  Sex: Female
  Weight: 59.86 kg

DRUGS (23)
  1. PENICILLINE [BENZYLPENICILLIN] [Concomitant]
     Active Substance: PENICILLIN G
  2. NORVIR [Concomitant]
     Active Substance: RITONAVIR
  3. REYATAZ [Concomitant]
     Active Substance: ATAZANAVIR SULFATE
  4. SUSTIVA [Concomitant]
     Active Substance: EFAVIRENZ
  5. VIRACEPT [Concomitant]
     Active Substance: NELFINAVIR MESYLATE
  6. VIRAMUNE [Concomitant]
     Active Substance: NEVIRAPINE
  7. ZIAGEN [Concomitant]
     Active Substance: ABACAVIR SULFATE
  8. PREDNISONE. [Concomitant]
     Active Substance: PREDNISONE
  9. EPZICOM [Concomitant]
     Active Substance: ABACAVIR SULFATE\LAMIVUDINE
  10. PREZCOBIX [Concomitant]
     Active Substance: COBICISTAT\DARUNAVIR ETHANOLATE
  11. RETROVIR [Concomitant]
     Active Substance: ZIDOVUDINE
  12. VIREAD [Suspect]
     Active Substance: TENOFOVIR DISOPROXIL FUMARATE
     Dosage: UNK
     Route: 048
     Dates: start: 200805, end: 200808
  13. AMOXICILLIN. [Concomitant]
     Active Substance: AMOXICILLIN
  14. BACTRIM [Concomitant]
     Active Substance: SULFAMETHOXAZOLE\TRIMETHOPRIM
  15. LEVOTHYROXINE. [Concomitant]
     Active Substance: LEVOTHYROXINE
  16. COMBIVIR [Concomitant]
     Active Substance: LAMIVUDINE\ZIDOVUDINE
  17. EPIVIR [Concomitant]
     Active Substance: LAMIVUDINE
  18. KALETRA [Concomitant]
     Active Substance: LOPINAVIR\RITONAVIR
  19. TIVICAY [Concomitant]
     Active Substance: DOLUTEGRAVIR SODIUM
  20. VIDEX [Concomitant]
     Active Substance: DIDANOSINE
  21. VIREAD [Suspect]
     Active Substance: TENOFOVIR DISOPROXIL FUMARATE
     Indication: HIV INFECTION
     Dosage: UNK
     Route: 048
     Dates: start: 2001, end: 2006
  22. ACYCLOVIR [ACICLOVIR] [Concomitant]
     Active Substance: ACYCLOVIR
  23. CRIXIVAN [Concomitant]
     Active Substance: INDINAVIR SULFATE

REACTIONS (17)
  - Chronic kidney disease [Not Recovered/Not Resolved]
  - Renal failure [Not Recovered/Not Resolved]
  - Anhedonia [Not Recovered/Not Resolved]
  - Haematuria [Not Recovered/Not Resolved]
  - Arthralgia [Unknown]
  - Tooth disorder [Unknown]
  - Anxiety [Not Recovered/Not Resolved]
  - Red blood cell count increased [Unknown]
  - Acute kidney injury [Not Recovered/Not Resolved]
  - Bone density decreased [Unknown]
  - Nephrolithiasis [Not Recovered/Not Resolved]
  - Emotional distress [Not Recovered/Not Resolved]
  - Economic problem [Not Recovered/Not Resolved]
  - Depression [Not Recovered/Not Resolved]
  - Pain [Not Recovered/Not Resolved]
  - Proteinuria [Not Recovered/Not Resolved]
  - Pyuria [Unknown]

NARRATIVE: CASE EVENT DATE: 20100224
